FAERS Safety Report 6717034-4 (Version None)
Quarter: 2010Q2

REPORT INFORMATION
  Report Type: 
  Country: None (occurrence: None)
  Receive Date: 20100510
  Receipt Date: 20100506
  Transmission Date: 20101027
  Serious: Yes (Death)
  Sender: FDA-Public Use
  Company Number: JP-JNJFOC-20100502045

PATIENT
  Sex: Male
  Weight: 57 kg

DRUGS (19)
  1. DUROTEP MT PATCH [Suspect]
     Indication: CANCER PAIN
     Route: 062
  2. DUROTEP MT PATCH [Suspect]
     Route: 062
  3. OXYCONTIN [Concomitant]
     Indication: CANCER PAIN
     Route: 048
  4. OPSO [Concomitant]
     Indication: CANCER PAIN
     Route: 048
  5. OPSO [Concomitant]
     Route: 048
  6. OPSO [Concomitant]
     Route: 048
  7. MORPHINE [Concomitant]
     Indication: ANALGESIC THERAPY
     Route: 042
  8. MORPHINE [Concomitant]
     Route: 042
  9. MORPHINE [Concomitant]
     Route: 042
  10. MORPHINE [Concomitant]
     Route: 042
  11. MORPHINE [Concomitant]
     Route: 042
  12. DECADRON [Concomitant]
     Indication: DRUG USE FOR UNKNOWN INDICATION
     Route: 048
  13. TAGAMET [Concomitant]
     Indication: DRUG USE FOR UNKNOWN INDICATION
     Route: 048
  14. PROCHLORPERAZINE [Concomitant]
     Indication: DRUG USE FOR UNKNOWN INDICATION
     Route: 048
  15. MAGMITT [Concomitant]
     Indication: DRUG USE FOR UNKNOWN INDICATION
     Route: 048
  16. MAGMITT [Concomitant]
     Route: 048
  17. MALFA [Concomitant]
     Indication: DRUG USE FOR UNKNOWN INDICATION
     Route: 048
  18. ALDIOXA [Concomitant]
     Indication: DRUG USE FOR UNKNOWN INDICATION
     Route: 048
  19. GABAPEN [Concomitant]
     Indication: ANALGESIC THERAPY
     Route: 048

REACTIONS (6)
  - CONVULSION [None]
  - DEPRESSED LEVEL OF CONSCIOUSNESS [None]
  - NEUROPATHY PERIPHERAL [None]
  - PAIN [None]
  - RECTAL CANCER [None]
  - VISUAL ACUITY REDUCED [None]
